FAERS Safety Report 10222693 (Version 2)
Quarter: 2014Q2

REPORT INFORMATION
  Report Type: Spontaneous
  Country: US (occurrence: US)
  Receive Date: 20140606
  Receipt Date: 20140606
  Transmission Date: 20141212
  Serious: Yes (Other)
  Sender: FDA-Public Use
  Company Number: US-GILEAD-2013-0081455

PATIENT
  Sex: Male

DRUGS (4)
  1. TRUVADA [Suspect]
     Indication: PROPHYLAXIS AGAINST HIV INFECTION
     Dosage: UNK
     Dates: start: 20120531, end: 20121017
  2. PROPANOLOL                         /00030001/ [Concomitant]
     Dosage: 40 MG, UNK
     Route: 048
  3. ASPIRIN [Concomitant]
     Dosage: 81 MG, UNK
  4. IBUPROFEN [Concomitant]
     Dosage: 800 MG, UNK

REACTIONS (2)
  - Seroconversion test positive [Not Recovered/Not Resolved]
  - Treatment noncompliance [Unknown]
